FAERS Safety Report 5191815-3 (Version None)
Quarter: 2006Q4

REPORT INFORMATION
  Report Type: 
  Country: None (occurrence: None)
  Receive Date: 20061220
  Receipt Date: 20061208
  Transmission Date: 20070319
  Serious: No
  Sender: FDA-Public Use
  Company Number: 233386

PATIENT
  Age: 17 Year
  Sex: Female
  Weight: 46.1 kg

DRUGS (2)
  1. NUTROPIN [Suspect]
     Indication: GROWTH HORMONE DEFICIENCY
     Dosage: 3.3 MG, 7/WEEK
     Dates: start: 19921118, end: 20061009
  2. SYNTHROID [Concomitant]

REACTIONS (1)
  - NEUROFIBROSARCOMA [None]
